FAERS Safety Report 6574634-2 (Version None)
Quarter: 2010Q1

REPORT INFORMATION
  Report Type: 
  Country: None (occurrence: None)
  Receive Date: 20100209
  Receipt Date: 20100129
  Transmission Date: 20100710
  Serious: Yes (Hospitalization)
  Sender: FDA-Public Use
  Company Number: GB-JNJFOC-20100201085

PATIENT
  Sex: Male
  Weight: 87.7 kg

DRUGS (15)
  1. REMICADE [Suspect]
     Indication: CROHN'S DISEASE
     Route: 042
  2. REMICADE [Suspect]
     Route: 042
  3. REMICADE [Suspect]
     Route: 042
  4. REMICADE [Suspect]
     Route: 042
  5. ASACOL [Concomitant]
     Indication: CROHN'S DISEASE
  6. EPILIM CHRONO [Concomitant]
     Indication: EPILEPSY
  7. OMEPRAZOLE [Concomitant]
     Indication: GASTROOESOPHAGEAL REFLUX DISEASE
  8. ADIZEM [Concomitant]
  9. TEGRETOL RETARD [Concomitant]
     Indication: EPILEPSY
     Route: 048
  10. LISINOPRIL [Concomitant]
     Indication: HYPERTENSION
  11. FUROSEMIDE [Concomitant]
     Indication: DIURETIC THERAPY
  12. ADCAL -D3 [Concomitant]
  13. PARACETAMOL [Concomitant]
     Indication: PAIN
  14. TRAMADOL [Concomitant]
     Indication: PAIN
  15. LEVOTHYROXINE SODIUM [Concomitant]
     Indication: HYPOTHYROIDISM
     Dosage: DOSE OF 100 MCG

REACTIONS (3)
  - EPILEPSY [None]
  - FALL [None]
  - UPPER LIMB FRACTURE [None]
